FAERS Safety Report 5596521-9 (Version None)
Quarter: 2008Q1

REPORT INFORMATION
  Report Type: 
  Country: None (occurrence: None)
  Receive Date: 20080118
  Receipt Date: 20080108
  Transmission Date: 20080703
  Serious: Yes (Other)
  Sender: FDA-Public Use
  Company Number: US-PFIZER INC-2008002137

PATIENT
  Age: 79 Year
  Sex: Female

DRUGS (17)
  1. SUTENT [Suspect]
     Indication: METASTATIC RENAL CELL CARCINOMA
     Route: 048
     Dates: start: 20070622, end: 20070719
  2. SUTENT [Suspect]
     Route: 048
     Dates: start: 20070810, end: 20070827
  3. AVASTIN [Suspect]
     Indication: METASTATIC RENAL CELL CARCINOMA
     Route: 042
     Dates: start: 20070621, end: 20070621
  4. AVASTIN [Suspect]
     Route: 042
     Dates: start: 20070705, end: 20070705
  5. AVASTIN [Suspect]
     Route: 042
     Dates: start: 20070720, end: 20070720
  6. AVASTIN [Suspect]
     Route: 042
     Dates: start: 20070809, end: 20070809
  7. AVASTIN [Suspect]
     Route: 042
     Dates: start: 20070823, end: 20070823
  8. ACETAMINOPHEN [Concomitant]
  9. ALPRAZOLAM [Concomitant]
  10. PROPRANOLOL HYDROCHLORIDE [Concomitant]
  11. FUROSEMIDE [Concomitant]
  12. VITAMIN CAP [Concomitant]
  13. AMLODIPINE [Concomitant]
  14. CETIRIZINE HCL [Concomitant]
  15. FELODIPINE [Concomitant]
  16. BENAZEPRIL HYDROCHLORIDE [Concomitant]
  17. HEPARIN SODIUM INJECTION [Concomitant]

REACTIONS (1)
  - THROMBOTIC MICROANGIOPATHY [None]
